FAERS Safety Report 7723760-0 (Version None)
Quarter: 2011Q3

REPORT INFORMATION
  Report Type: 
  Country: None (occurrence: None)
  Receive Date: 20110901
  Receipt Date: 20110826
  Transmission Date: 20111222
  Serious: Yes (Life-Threatening, Hospitalization)
  Sender: FDA-Public Use
  Company Number: IT-ELI_LILLY_AND_COMPANY-IT201108007951

PATIENT

DRUGS (4)
  1. CISPLATIN [Concomitant]
     Dosage: 155.2 MG, UNKNOWN
     Route: 042
  2. ALIMTA [Suspect]
     Dosage: 970 MG, UNKNOWN
     Route: 042
  3. ALIMTA [Suspect]
     Indication: LUNG ADENOCARCINOMA
     Dosage: 945 MG, UNKNOWN
     Route: 042
  4. CISPLATIN [Concomitant]
     Dosage: 141.75 MG, UNKNOWN
     Route: 042

REACTIONS (4)
  - SUBARACHNOID HAEMORRHAGE [None]
  - NAUSEA [None]
  - VOMITING [None]
  - WEIGHT DECREASED [None]
